FAERS Safety Report 10222979 (Version 1)
Quarter: 2014Q2

REPORT INFORMATION
  Report Type: Report from Study
  Country: AT (occurrence: AT)
  Receive Date: 20140607
  Receipt Date: 20140607
  Transmission Date: 20141212
  Serious: Yes (Other)
  Sender: FDA-Public Use
  Company Number: PHHY2014AT069425

PATIENT
  Sex: 0

DRUGS (2)
  1. GLIVEC [Suspect]
     Dosage: 400 MG, UNK
  2. TASIGNA [Suspect]
     Dosage: 400 MG, BID (LESS THAN 400 MG)

REACTIONS (6)
  - Fatigue [Unknown]
  - Performance status decreased [Unknown]
  - Neuropathy peripheral [Unknown]
  - Vertigo [Unknown]
  - Glossodynia [Unknown]
  - Feeling abnormal [Unknown]
